FAERS Safety Report 9701013 (Version 3)
Quarter: 2013Q4

REPORT INFORMATION
  Report Type: Spontaneous
  Country: AR (occurrence: AR)
  Receive Date: 20131121
  Receipt Date: 20131223
  Transmission Date: 20140711
  Serious: Yes (Death)
  Sender: FDA-Public Use
  Company Number: AR-INCYTE CORPORATION-2013IN002672

PATIENT
  Sex: Male

DRUGS (4)
  1. JAKAVI [Suspect]
     Dosage: 100 MG, DAILY
     Route: 048
     Dates: start: 20120830
  2. OMEPRAZOLE [Concomitant]
     Dosage: UNK
     Dates: start: 20101203
  3. ENALAPRIL [Concomitant]
     Dosage: 5 MG
     Dates: start: 20101003
  4. ASS [Concomitant]
     Dosage: UNK
     Dates: start: 20101203

REACTIONS (1)
  - Sudden death [Fatal]
